FAERS Safety Report 4820463-7 (Version None)
Quarter: 2005Q4

REPORT INFORMATION
  Report Type: 
  Country: None (occurrence: None)
  Receive Date: 20051104
  Receipt Date: 20051027
  Transmission Date: 20060501
  Serious: Yes (Other)
  Sender: FDA-Public Use
  Company Number: PHNU2005DE03578

PATIENT
  Age: 69 Year
  Sex: Male

DRUGS (3)
  1. PREDNISOLONE [Concomitant]
     Dosage: 5 MG, QD
     Route: 065
  2. ZOMETA [Suspect]
     Indication: PROSTATE CANCER METASTATIC
     Dosage: 4 MG, Q3MO
     Route: 042
     Dates: start: 20020101
  3. ZOMETA [Suspect]
     Dosage: 4 MG, QMO
     Route: 042

REACTIONS (4)
  - DENTAL TREATMENT [None]
  - ORAL SURGERY [None]
  - OSTEONECROSIS [None]
  - X-RAY ABNORMAL [None]
